FAERS Safety Report 5267295-6 (Version None)
Quarter: 2007Q1

REPORT INFORMATION
  Report Type: 
  Country: None (occurrence: None)
  Receive Date: 20070316
  Receipt Date: 20070309
  Transmission Date: 20070707
  Serious: Yes (Life-Threatening, Hospitalization)
  Sender: FDA-Public Use
  Company Number: JP-GLAXOSMITHKLINE-B0458606A

PATIENT
  Age: 79 Year
  Sex: Female

DRUGS (1)
  1. VALTREX [Suspect]
     Indication: HERPES ZOSTER
     Dosage: 1000MG THREE TIMES PER DAY
     Route: 048
     Dates: start: 20070129, end: 20070201

REACTIONS (3)
  - CIRCULATORY COLLAPSE [None]
  - DEPRESSED LEVEL OF CONSCIOUSNESS [None]
  - RENAL FAILURE ACUTE [None]
